FAERS Safety Report 7332502-2 (Version None)
Quarter: 2011Q1

REPORT INFORMATION
  Report Type: 
  Country: None (occurrence: None)
  Receive Date: 20110222
  Receipt Date: 20110209
  Transmission Date: 20110831
  Serious: Yes (Hospitalization)
  Sender: FDA-Public Use
  Company Number: 1000018825

PATIENT
  Age: 81 Year
  Sex: Female

DRUGS (10)
  1. ACETAMINOPHEN AND TRAMADOL HCL [Suspect]
     Indication: PAIN
     Dosage: ORAL
     Route: 048
  2. PRAVASTATIN [Concomitant]
  3. ALLOPURINOL [Concomitant]
  4. APROVEL (IRBESARTAN) [Suspect]
     Indication: HYPERTENSION
     Dosage: 75 MG (75 MG,1 IN 1 D),ORAL
     Route: 048
  5. MIANSERIN (MIANSERIN HYDROCHLORIDE) [Suspect]
     Indication: DEPRESSION
     Dosage: 10 MG (10 MG,1 IN 1 D),ORAL
     Route: 048
     Dates: end: 20110107
  6. NEBIVOLOL (NEBIVOLOL HYDROCHLORIDE) [Suspect]
     Indication: HYPERTENSION
     Dosage: 5 MG (5 MG,1 IN 1 D),ORAL
     Route: 048
  7. ADANCOR (NICORANDIL) [Suspect]
     Indication: HYPERTENSION
     Dosage: 10 MG (10 MG,1 IN 1 D),ORAL
     Route: 048
  8. LOXON (NICARDIPINE HYDROCHLORIDE) [Suspect]
     Indication: HYPERTENSION
     Dosage: 60 MG (20 MG,3 IN 1 D),ORAL
     Route: 048
     Dates: end: 20110107
  9. FORLAX (MACRGOL) (MACROGOL) [Concomitant]
  10. NEXIUM [Concomitant]

REACTIONS (17)
  - DISORIENTATION [None]
  - ELECTROENCEPHALOGRAM ABNORMAL [None]
  - GASTROENTERITIS [None]
  - SYNCOPE [None]
  - PRESYNCOPE [None]
  - HYPOTONIA [None]
  - TENDERNESS [None]
  - HYPOTENSION [None]
  - ORTHOSTATIC HYPOTENSION [None]
  - DIARRHOEA [None]
  - CEREBRAL ATROPHY [None]
  - LOSS OF CONSCIOUSNESS [None]
  - URINARY INCONTINENCE [None]
  - EYE MOVEMENT DISORDER [None]
  - AMNESIA [None]
  - GASTROINTESTINAL SOUNDS ABNORMAL [None]
  - DYSKINESIA [None]
